FAERS Safety Report 9960130 (Version 2)
Quarter: 2014Q1

REPORT INFORMATION
  Report Type: Report from Study
  Country: US (occurrence: US)
  Receive Date: 20140305
  Receipt Date: 20140305
  Transmission Date: 20141002
  Serious: No
  Sender: FDA-Public Use
  Company Number: US-ABBVIE-13P-163-1063215-00

PATIENT
  Age: 46 Year
  Sex: Female

DRUGS (11)
  1. HUMIRA [Suspect]
     Indication: CROHN^S DISEASE
     Dates: start: 20130301, end: 20130301
  2. HUMIRA [Suspect]
  3. PREVACID [Concomitant]
     Indication: GASTROOESOPHAGEAL REFLUX DISEASE
  4. ULTRAM [Concomitant]
     Indication: PAIN
  5. VITAMIN D [Concomitant]
     Indication: VITAMIN D DECREASED
  6. LEXAPRO [Concomitant]
     Indication: ANXIETY
  7. LEXAPRO [Concomitant]
     Indication: DEPRESSION
  8. BENTYL [Concomitant]
     Indication: ABDOMINAL PAIN
  9. UNKNOWN SUPPOSITORY [Concomitant]
     Indication: CROHN^S DISEASE
  10. UNKNOWN CREAM [Concomitant]
     Indication: ARTHRITIS
  11. UNKNOWN CREAM [Concomitant]
     Indication: FIBROMYALGIA

REACTIONS (6)
  - Frequent bowel movements [Not Recovered/Not Resolved]
  - Nasopharyngitis [Not Recovered/Not Resolved]
  - Injection site pain [Not Recovered/Not Resolved]
  - Bronchitis [Not Recovered/Not Resolved]
  - Abdominal pain [Not Recovered/Not Resolved]
  - Hypersensitivity [Not Recovered/Not Resolved]
